FAERS Safety Report 4311543-3 (Version None)
Quarter: 2004Q1

REPORT INFORMATION
  Report Type: 
  Country: None (occurrence: None)
  Receive Date: 20040303
  Receipt Date: 20040303
  Transmission Date: 20041129
  Serious: Yes (Hospitalization)
  Sender: FDA-Public Use
  Company Number: None

PATIENT
  Age: 34 Year
  Sex: Female

DRUGS (9)
  1. MUROMONAB [Suspect]
     Dosage: 5 MG DAILY INTRAVENOUS
     Route: 042
  2. TACROLIMUS [Concomitant]
  3. SIROLIMUS [Concomitant]
  4. PREDNISONE [Concomitant]
  5. GABAPENTIN [Concomitant]
  6. VALGANCICLOVIR [Concomitant]
  7. TRIMETHOPRIM-SULFAMETHOXAZOLE [Concomitant]
  8. ATORVASTATIN [Concomitant]
  9. PIOGLITAZONE HCL [Concomitant]

REACTIONS (8)
  - BENIGN INTRACRANIAL HYPERTENSION [None]
  - MENINGITIS ASEPTIC [None]
  - NERVOUS SYSTEM DISORDER [None]
  - NUCHAL RIGIDITY [None]
  - PAIN [None]
  - PAPILLOEDEMA [None]
  - PHOTOPHOBIA [None]
  - VISUAL FIELD DEFECT [None]
